FAERS Safety Report 24562787 (Version 1)
Quarter: 2024Q4

REPORT INFORMATION
  Report Type: Report from Study
  Country: US (occurrence: US)
  Receive Date: 20241029
  Receipt Date: 20241029
  Transmission Date: 20250115
  Serious: Yes (Other)
  Sender: BIOGEN
  Company Number: US-BIOGEN-2022BI01167794

PATIENT
  Sex: Female

DRUGS (3)
  1. VUMERITY [Suspect]
     Active Substance: DIROXIMEL FUMARATE
     Indication: Multiple sclerosis
     Route: 050
     Dates: start: 20210128
  2. VUMERITY [Suspect]
     Active Substance: DIROXIMEL FUMARATE
     Dosage: TWO PILLS IN THE AM ONLY?DOWN TO TWO PILLS ONCE PER DAY INSTEAD OF TWO PILLS TWICE PER DAY PER HE...
     Route: 050
     Dates: start: 2022
  3. VUMERITY [Suspect]
     Active Substance: DIROXIMEL FUMARATE
     Route: 050
     Dates: end: 2022

REACTIONS (3)
  - Full blood count decreased [Unknown]
  - Blood test abnormal [Not Recovered/Not Resolved]
  - White blood cell count abnormal [Unknown]
